FAERS Safety Report 9176786 (Version 1)
Quarter: 2013Q1

REPORT INFORMATION
  Report Type: Spontaneous
  Country: MX (occurrence: MX)
  Receive Date: 20130321
  Receipt Date: 20130321
  Transmission Date: 20140127
  Serious: Yes (Death)
  Sender: FDA-Public Use
  Company Number: MX-PFIZER INC-2013093341

PATIENT
  Age: 53 Year
  Sex: Female

DRUGS (1)
  1. CHAMPIX [Suspect]
     Dosage: UNK
     Route: 048

REACTIONS (1)
  - Neoplasm malignant [Fatal]
